FAERS Safety Report 24587348 (Version 1)
Quarter: 2024Q4

REPORT INFORMATION
  Report Type: Spontaneous
  Country: IT (occurrence: IT)
  Receive Date: 20241107
  Receipt Date: 20241107
  Transmission Date: 20250114
  Serious: Yes (Death, Hospitalization, Other)
  Sender: AUROBINDO
  Company Number: IT-JNJFOC-20241016571

PATIENT
  Age: 70 Year
  Sex: Female

DRUGS (13)
  1. MELPHALAN [Suspect]
     Active Substance: MELPHALAN
     Indication: Plasma cell myeloma
     Dosage: 6 MILLIGRAM
     Route: 065
     Dates: start: 20240821, end: 20240824
  2. MELPHALAN [Suspect]
     Active Substance: MELPHALAN
     Dosage: 12 MILLIGRAM
     Route: 065
     Dates: start: 20241008, end: 20241011
  3. VELCADE [Suspect]
     Active Substance: BORTEZOMIB
     Indication: Plasma cell myeloma
     Dosage: 1 MG/MQ
     Route: 065
     Dates: start: 20240705, end: 20240919
  4. VELCADE [Suspect]
     Active Substance: BORTEZOMIB
     Dosage: 1.4 MILLIGRAM
     Route: 065
     Dates: start: 20241007, end: 20241007
  5. DARZALEX [Suspect]
     Active Substance: DARATUMUMAB
     Indication: Plasma cell myeloma
     Dosage: 1800 MILLIGRAM
     Route: 065
     Dates: start: 20240705, end: 20240910
  6. DARZALEX [Suspect]
     Active Substance: DARATUMUMAB
     Dosage: 1800 MILLIGRAM
     Route: 065
     Dates: start: 20241007, end: 20241007
  7. DEXAMETHASONE [Suspect]
     Active Substance: DEXAMETHASONE
     Indication: Plasma cell myeloma
     Dosage: 25 MILLIGRAM
     Route: 065
     Dates: start: 20240405, end: 20240823
  8. DEXAMETHASONE [Suspect]
     Active Substance: DEXAMETHASONE
     Dosage: 25 MILLIGRAM
     Route: 065
     Dates: start: 20241008, end: 20241010
  9. CANRENONE [Concomitant]
     Active Substance: CANRENONE
     Indication: Diuretic therapy
     Dosage: 50 MILLIGRAM
     Route: 065
  10. BACTRIM [Concomitant]
     Active Substance: SULFAMETHOXAZOLE\TRIMETHOPRIM
     Indication: Prophylaxis
     Dosage: UNK
     Route: 065
  11. ACYCLOVIR [Concomitant]
     Active Substance: ACYCLOVIR
     Indication: Prophylaxis
     Dosage: 200 MILLIGRAM
     Route: 065
  12. FUROSEMIDE [Concomitant]
     Active Substance: FUROSEMIDE
     Indication: Diuretic therapy
     Dosage: 50 MILLIGRAM
     Route: 065
  13. OMEPRAZOLE [Concomitant]
     Active Substance: OMEPRAZOLE
     Indication: Prophylaxis
     Dosage: 20 MILLIGRAM
     Route: 065

REACTIONS (2)
  - Septic shock [Fatal]
  - Ischaemic stroke [Recovered/Resolved]

NARRATIVE: CASE EVENT DATE: 20240918
